FAERS Safety Report 8758026 (Version 2)
Quarter: 2012Q4

REPORT INFORMATION
  Report Type: 
  Country: US (occurrence: US)
  Receive Date: 20120828
  Receipt Date: 20121212
  Transmission Date: 20130627
  Serious: Yes (Other)
  Sender: FDA-Public Use
  Company Number: US-PFIZER INC-2012204738

PATIENT
  Sex: Female

DRUGS (2)
  1. PREMARIN [Suspect]
  2. ZOLOFT [Suspect]

REACTIONS (6)
  - Convulsion [Unknown]
  - Tooth abscess [Unknown]
  - Migraine [Unknown]
  - Abnormal dreams [Unknown]
  - Emotional disorder [Unknown]
  - Panic attack [Unknown]
